FAERS Safety Report 8513298-5 (Version None)
Quarter: 2012Q3

REPORT INFORMATION
  Report Type: 
  Country: None (occurrence: None)
  Receive Date: 20120716
  Receipt Date: 20120705
  Transmission Date: 20120928
  Serious: Yes (Hospitalization)
  Sender: FDA-Public Use
  Company Number: FR-ROCHE-1084865

PATIENT
  Sex: Female
  Weight: 57 kg

DRUGS (7)
  1. MEDROL [Concomitant]
     Dates: start: 20120416
  2. ACETAMINOPHEN [Concomitant]
     Dates: start: 20120416
  3. DOCETAXEL [Suspect]
     Indication: BREAST CANCER
     Dosage: LAST DOSE PRIOR TO SAE 18/JUN/2012
     Route: 042
     Dates: start: 20120416
  4. BICARBONATE [Concomitant]
     Dates: start: 20120416
  5. HERCEPTIN [Suspect]
     Indication: BREAST CANCER
     Dosage: LAST DOSE PRIOR TO SAE 18/JUN/2012
     Route: 042
     Dates: start: 20120416
  6. FLUCONAZOLE [Concomitant]
     Dates: start: 20120416
  7. ALODONT [Concomitant]
     Dates: start: 20120416

REACTIONS (1)
  - VERTIGO [None]
